FAERS Safety Report 16485428 (Version 1)
Quarter: 2019Q2

REPORT INFORMATION
  Report Type: Spontaneous
  Country: US (occurrence: US)
  Receive Date: 20190627
  Receipt Date: 20190627
  Transmission Date: 20190711
  Serious: No
  Sender: FDA-Public Use
  Company Number: US-JNJFOC-20190619402

PATIENT
  Age: 67 Year
  Sex: Female

DRUGS (1)
  1. IBRUTINIB UNSPECIFIED [Suspect]
     Active Substance: IBRUTINIB
     Indication: WALDENSTROM^S MACROGLOBULINAEMIA
     Dosage: 420 MG, QD
     Route: 048

REACTIONS (9)
  - Heart rate increased [Not Recovered/Not Resolved]
  - Pain [Unknown]
  - Panic disorder [Unknown]
  - Nausea [Unknown]
  - Anxiety [Unknown]
  - Vision blurred [Unknown]
  - Palpitations [Not Recovered/Not Resolved]
  - Dizziness [Unknown]
  - Asthenia [Unknown]

NARRATIVE: CASE EVENT DATE: 201906
